FAERS Safety Report 9186908 (Version 1)
Quarter: 2013Q1

REPORT INFORMATION
  Report Type: Spontaneous
  Country: US (occurrence: US)
  Receive Date: 20130325
  Receipt Date: 20130325
  Transmission Date: 20140127
  Serious: Yes (Other)
  Sender: FDA-Public Use
  Company Number: US-GLAXOSMITHKLINE-A0999624A

PATIENT
  Age: 52 Year
  Sex: Female

DRUGS (2)
  1. TYKERB [Suspect]
     Indication: BREAST CANCER
     Dosage: 1500MG PER DAY
     Route: 048
     Dates: start: 20120619, end: 20121004
  2. LETROZOLE [Suspect]
     Indication: BREAST CANCER
     Dosage: 2.5MG UNKNOWN
     Route: 065

REACTIONS (1)
  - Breast cancer [Unknown]
